FAERS Safety Report 5582004-9 (Version None)
Quarter: 2008Q1

REPORT INFORMATION
  Report Type: 
  Country: None (occurrence: None)
  Receive Date: 20080104
  Receipt Date: 20071227
  Transmission Date: 20080703
  Serious: Yes (Other)
  Sender: FDA-Public Use
  Company Number: US-SANOFI-SYNTHELABO-A03200707069

PATIENT
  Sex: Female

DRUGS (2)
  1. AMBIEN [Suspect]
     Indication: SLEEP DISORDER
     Dosage: 10 MG EVERY NIGHT, HAVE TAKEN ANOTHER HALF A PILL
     Route: 048
  2. AMBIEN [Suspect]
     Indication: SYSTEMIC LUPUS ERYTHEMATOSUS
     Dosage: 10 MG EVERY NIGHT, HAVE TAKEN ANOTHER HALF A PILL
     Route: 048

REACTIONS (3)
  - DRUG EFFECT DECREASED [None]
  - THERAPY REGIMEN CHANGED [None]
  - WEIGHT INCREASED [None]
